FAERS Safety Report 12991362 (Version 1)
Quarter: 2016Q4

REPORT INFORMATION
  Report Type: Spontaneous
  Country: US (occurrence: US)
  Receive Date: 20161201
  Receipt Date: 20161201
  Transmission Date: 20170207
  Serious: Yes (Hospitalization)
  Sender: FDA-Public Use
  Company Number: US-RELYPSA-RLY2016004056

PATIENT
  Age: 82 Year
  Sex: Male

DRUGS (9)
  1. MIDODRINE [Concomitant]
     Active Substance: MIDODRINE
     Indication: HYPOTENSION
  2. PROTONIX                           /00661201/ [Concomitant]
     Active Substance: OMEPRAZOLE
  3. NIACIN. [Concomitant]
     Active Substance: NIACIN
  4. PRAVASTATIN. [Concomitant]
     Active Substance: PRAVASTATIN
  5. ASPIRIN 81 [Concomitant]
     Active Substance: ASPIRIN
     Dosage: 81 MG, UNKNOWN
  6. VELTASSA [Suspect]
     Active Substance: PATIROMER
     Indication: BLOOD POTASSIUM INCREASED
     Dosage: 16.8 G, QD
     Route: 048
     Dates: start: 20161122, end: 20161122
  7. FISH OIL [Concomitant]
     Active Substance: FISH OIL
  8. CO Q 10                            /00517201/ [Concomitant]
  9. ELIQUIS [Concomitant]
     Active Substance: APIXABAN

REACTIONS (7)
  - Pneumonia aspiration [Unknown]
  - Gastrointestinal disorder [Unknown]
  - Chills [Unknown]
  - Diarrhoea [Recovering/Resolving]
  - Vomiting [Recovered/Resolved]
  - Drug dose titration not performed [Recovered/Resolved]
  - Decreased appetite [Not Recovered/Not Resolved]

NARRATIVE: CASE EVENT DATE: 20161122
